FAERS Safety Report 9173882 (Version 1)
Quarter: 2013Q1

REPORT INFORMATION
  Report Type: Spontaneous
  Country: FR (occurrence: FR)
  Receive Date: 20130320
  Receipt Date: 20130320
  Transmission Date: 20140127
  Serious: Yes (Hospitalization, Disabling)
  Sender: FDA-Public Use
  Company Number: FR-BRISTOL-MYERS SQUIBB COMPANY-17469123

PATIENT
  Age: 58 Year
  Sex: Male

DRUGS (6)
  1. BUSPAR [Suspect]
     Indication: ANXIETY
     Route: 048
     Dates: end: 20121206
  2. GRAPE [Interacting]
  3. DEROXAT [Concomitant]
     Indication: DEPRESSION
     Dosage: DEROXAT 20 MG, SCORED FILM-COATED TABLET
     Route: 048
     Dates: start: 20121201, end: 20121207
  4. ATHYMIL [Concomitant]
     Indication: DEPRESSION
     Route: 048
  5. DIFFU-K [Concomitant]
     Indication: HYPOKALAEMIA
     Dosage: CAPS
     Route: 048
  6. INEXIUM [Concomitant]
     Indication: GASTRIC DISORDER
     Route: 048

REACTIONS (7)
  - Convulsion [Recovered/Resolved]
  - Hypoglycaemia [Recovered/Resolved]
  - Hypokalaemia [Recovered/Resolved]
  - Fall [Recovered/Resolved]
  - Scapula fracture [Recovered/Resolved]
  - Food interaction [Recovered/Resolved]
  - Grand mal convulsion [None]
